FAERS Safety Report 14301980 (Version 1)
Quarter: 2017Q4

REPORT INFORMATION
  Report Type: Spontaneous
  Country: US (occurrence: US)
  Receive Date: 20171218
  Receipt Date: 20171218
  Transmission Date: 20180321
  Serious: Yes (Hospitalization)
  Sender: FDA-Public Use
  Company Number: None

PATIENT
  Age: 57 Year
  Sex: Female

DRUGS (7)
  1. METHYLPRED [Concomitant]
     Active Substance: METHYLPREDNISOLONE
  2. APAP/CODEINE [Concomitant]
     Active Substance: ACETAMINOPHEN\CODEINE PHOSPHATE
  3. RANITIDINE. [Concomitant]
     Active Substance: RANITIDINE
  4. OMEPRAZOLE. [Concomitant]
     Active Substance: OMEPRAZOLE
  5. DEPO-ESTRADIOL [Suspect]
     Active Substance: ESTRADIOL CYPIONATE
     Indication: MENOPAUSE
     Route: 030
  6. IBUPROFEN. [Concomitant]
     Active Substance: IBUPROFEN
  7. LORATADINE. [Concomitant]
     Active Substance: LORATADINE

REACTIONS (3)
  - Sepsis [None]
  - Clostridium test positive [None]
  - Product use issue [None]
